FAERS Safety Report 8886851 (Version 1)
Quarter: 2012Q4

REPORT INFORMATION
  Report Type: 
  Country: GB (occurrence: GB)
  Receive Date: 20121105
  Receipt Date: 20121105
  Transmission Date: 20130627
  Serious: Yes (Life-Threatening, Hospitalization, Other)
  Sender: FDA-Public Use
  Company Number: GB-PFIZER INC-2012272582

PATIENT
  Age: 62 Year
  Sex: Male
  Weight: 90 kg

DRUGS (8)
  1. CISPLATIN [Suspect]
     Indication: NON-HODGKIN^S LYMPHOMA
     Dosage: 69mg, Unk
     Route: 042
     Dates: start: 20120926, end: 20120926
  2. CISPLATIN [Suspect]
     Indication: ANGIOIMMUNOBLASTIC T-CELL LYMPHOMA
  3. LENOGRASTIM [Concomitant]
     Dosage: 263?g, Unk
     Route: 058
     Dates: start: 20120926
  4. ENOXAPARIN [Concomitant]
     Dosage: 20 mg, 1x/day
  5. GRANISETRON [Concomitant]
     Dosage: 3mg, Unk
     Route: 042
     Dates: start: 20120926
  6. APREPITANT [Concomitant]
     Dosage: 125mg, Unk
     Route: 048
     Dates: start: 20120926
  7. METOCLOPRAMIDE [Concomitant]
     Dosage: 10mg, Unk
     Route: 048
     Dates: start: 20120926
  8. DEXAMETHASONE [Concomitant]
     Dosage: 40mg, Unk
     Route: 048
     Dates: start: 20120926

REACTIONS (1)
  - Acute myocardial infarction [Recovering/Resolving]
